FAERS Safety Report 20002873 (Version 1)
Quarter: 2021Q4

REPORT INFORMATION
  Report Type: Spontaneous
  Country: US (occurrence: US)
  Receive Date: 20211027
  Receipt Date: 20211027
  Transmission Date: 20220303
  Serious: Yes (Other)
  Sender: FDA-Public Use
  Company Number: US-PFIZER INC-202101440242

PATIENT
  Age: 55 Year
  Sex: Female

DRUGS (1)
  1. XELJANZ XR [Suspect]
     Active Substance: TOFACITINIB CITRATE
     Dosage: 11 MG, DAILY
     Route: 048
     Dates: start: 20201231, end: 20210901

REACTIONS (11)
  - Myocardial infarction [Unknown]
  - Pain in jaw [Unknown]
  - Pyrexia [Unknown]
  - Chills [Recovered/Resolved with Sequelae]
  - Hyperhidrosis [Unknown]
  - Cough [Not Recovered/Not Resolved]
  - Myalgia [Unknown]
  - Dyspnoea [Unknown]
  - Weight increased [Unknown]
  - Fatigue [Unknown]
  - Anxiety [Unknown]

NARRATIVE: CASE EVENT DATE: 20210101
